FAERS Safety Report 19153049 (Version 4)
Quarter: 2021Q4

REPORT INFORMATION
  Report Type: Report from Study
  Country: US (occurrence: US)
  Receive Date: 20210419
  Receipt Date: 20211124
  Transmission Date: 20220303
  Serious: No
  Sender: FDA-Public Use
  Company Number: NVSC2021US087484

PATIENT
  Age: 71 Year
  Sex: Female

DRUGS (3)
  1. ENTRESTO [Suspect]
     Active Substance: SACUBITRIL\VALSARTAN
     Indication: Product used for unknown indication
     Dosage: 50 MG, BID (24/26 MG)
     Route: 065
     Dates: start: 20210302
  2. ENTRESTO [Suspect]
     Active Substance: SACUBITRIL\VALSARTAN
     Dosage: 50 MG, QD (24/26 MG)
     Route: 065
  3. CARVEDILOL [Suspect]
     Active Substance: CARVEDILOL
     Indication: Product used for unknown indication
     Route: 065

REACTIONS (10)
  - Lethargy [Recovering/Resolving]
  - Incorrect dose administered [Recovering/Resolving]
  - Product dose omission issue [Recovering/Resolving]
  - Arthritis [Not Recovered/Not Resolved]
  - Intervertebral disc degeneration [Recovering/Resolving]
  - Upper-airway cough syndrome [Unknown]
  - Pain [Unknown]
  - Dizziness [Recovering/Resolving]
  - Hypotension [Recovering/Resolving]
  - Cough [Recovered/Resolved]

NARRATIVE: CASE EVENT DATE: 20201201
